FAERS Safety Report 13359149 (Version 3)
Quarter: 2017Q3

REPORT INFORMATION
  Report Type: Spontaneous
  Country: FR (occurrence: FR)
  Receive Date: 20170322
  Receipt Date: 20170719
  Transmission Date: 20171127
  Serious: Yes (Hospitalization)
  Sender: FDA-Public Use
  Company Number: FR-TEVA-750215ROM

PATIENT
  Age: 67 Year
  Sex: Male

DRUGS (12)
  1. TRISENOX [Suspect]
     Active Substance: ARSENIC TRIOXIDE
     Route: 042
     Dates: start: 20170228
  2. TRISENOX [Suspect]
     Active Substance: ARSENIC TRIOXIDE
     Indication: ACUTE MYELOID LEUKAEMIA
     Route: 042
     Dates: start: 20161230, end: 20170113
  3. TRISENOX [Suspect]
     Active Substance: ARSENIC TRIOXIDE
     Route: 042
     Dates: start: 20170205, end: 20170213
  4. VESANOID [Suspect]
     Active Substance: TRETINOIN
     Dosage: 100 MILLIGRAM DAILY; CONSOLIDATION THERAPY. FROM DAY 1 TO DAY 14.
     Route: 048
     Dates: start: 201703
  5. VESANOID [Suspect]
     Active Substance: TRETINOIN
     Dosage: 22.5 MG/KG DAILY; DAILY DOSE: 22.5 MG/KG;MAINTENANCE TREATMENT. FROM DAY 1 TO DAY 15
     Route: 048
     Dates: start: 20170228
  6. CACIT VITAMINE D3 [Concomitant]
     Active Substance: CALCIUM CARBONATE\CHOLECALCIFEROL
  7. TRISENOX [Suspect]
     Active Substance: ARSENIC TRIOXIDE
     Dosage: CONSOLIDATION CHEMOTHERAPY
     Route: 042
     Dates: start: 201703, end: 201703
  8. VESANOID [Suspect]
     Active Substance: TRETINOIN
     Indication: ACUTE MYELOID LEUKAEMIA
     Route: 048
     Dates: start: 20161227, end: 20170217
  9. EUPANTOL [Concomitant]
     Active Substance: PANTOPRAZOLE SODIUM
     Dosage: EXACT FORM: GASTRO-RESISTANT TABLET
  10. TRISENOX [Suspect]
     Active Substance: ARSENIC TRIOXIDE
     Dosage: EXACT FORM: CONCENTRATE FOR SOLUTION FOR INFUSION. DELIVERED CONTINUOUSLY
     Route: 042
     Dates: start: 20170113, end: 20170204
  11. DIAMICRON 60 MG [Concomitant]
     Active Substance: GLICLAZIDE
  12. ARIXTRA 7.5 MG/0.6 ML [Concomitant]

REACTIONS (1)
  - Wernicke^s encephalopathy [Recovering/Resolving]

NARRATIVE: CASE EVENT DATE: 20170216
